FAERS Safety Report 4525687-4 (Version None)
Quarter: 2004Q4

REPORT INFORMATION
  Report Type: 
  Country: None (occurrence: None)
  Receive Date: 20041116
  Receipt Date: 20041015
  Transmission Date: 20050328
  Serious: No
  Sender: FDA-Public Use
  Company Number: S04-USA-06882-01

PATIENT
  Age: 70 Year
  Sex: Female

DRUGS (4)
  1. NAMENDA [Suspect]
     Indication: DEMENTIA ALZHEIMER'S TYPE
  2. WELLBUTRIN [Suspect]
     Dosage: 150 MG QD
     Dates: end: 20040101
  3. WELLBUTRIN [Suspect]
     Dosage: 300 MG QD
     Dates: start: 20040101
  4. ARICEPT [Concomitant]

REACTIONS (1)
  - DRUG INTERACTION [None]
